FAERS Safety Report 9348859 (Version 2)
Quarter: 2013Q3

REPORT INFORMATION
  Report Type: Spontaneous
  Country: RU (occurrence: RU)
  Receive Date: 20130614
  Receipt Date: 20130715
  Transmission Date: 20140515
  Serious: Yes (Hospitalization)
  Sender: FDA-Public Use
  Company Number: RU-GE HEALTHCARE MEDICAL DIAGNOSTICS-OMPQ-NO-1306S-0726

PATIENT
  Age: 38 Year
  Sex: Female
  Weight: 66 kg

DRUGS (2)
  1. OMNIPAQUE [Suspect]
     Indication: PRODUCT USED FOR UNKNOWN INDICATION
     Route: 042
     Dates: start: 20130530, end: 20130530
  2. OMNIPAQUE [Suspect]
     Indication: DIAGNOSTIC PROCEDURE

REACTIONS (7)
  - Skin burning sensation [Recovered/Resolved]
  - Depressed level of consciousness [Recovered/Resolved]
  - Leukocytosis [Recovered/Resolved]
  - Myalgia [Recovered/Resolved]
  - Pallor [Recovered/Resolved]
  - Body temperature increased [Recovered/Resolved]
  - Tachycardia [Recovered/Resolved]
